FAERS Safety Report 8911409 (Version 2)
Quarter: 2013Q1

REPORT INFORMATION
  Report Type: Spontaneous
  Country: GB (occurrence: None)
  Receive Date: 20121113
  Receipt Date: 20121203
  Transmission Date: 20140127
  Serious: Yes (Other)
  Sender: FDA-Public Use
  Company Number: AUR-APL-2012-04811

PATIENT
  Age: 62 Year
  Sex: Male
  Weight: 96 kg

DRUGS (12)
  1. FINASTERIDE [Suspect]
     Indication: BLADDER DISORDER
     Dates: start: 20121003, end: 20121014
  2. TAMSULOSIN [Suspect]
     Indication: BLADDER DISORDER
     Dates: start: 20121003, end: 20121014
  3. EZETIMIBE (EZETIMIBE) [Concomitant]
  4. LACTULOSE (LACTULOSE) [Concomitant]
  5. METFORMIN HYDROCHLORIDE (METFORMIN HYDROCHLORIDE) [Concomitant]
  6. MONTELUKAST SODIUM [Concomitant]
  7. OMEPRAZOLE (OMEPRAZOLE) [Concomitant]
  8. SENNA (SENNA ALEXANDRINA) [Concomitant]
  9. SITAGLIPTIN (SITAGLIPTIN) [Concomitant]
  10. SYMBICORT (BUDESONIDE W/FORMOTEROL FUMARATE) [Concomitant]
  11. TERBUTALINE (TERBUTALINE) [Concomitant]
  12. ZOMORPH (MORPHINE SULFATE) [Concomitant]

REACTIONS (9)
  - Abdominal pain [None]
  - Chest pain [None]
  - Dizziness [None]
  - Headache [None]
  - Diarrhoea [None]
  - Pain [None]
  - Palpitations [None]
  - Testicular pain [None]
  - Malaise [None]
